FAERS Safety Report 8760581 (Version 2)
Quarter: 2012Q4

REPORT INFORMATION
  Report Type: Spontaneous
  Country: JP (occurrence: None)
  Receive Date: 20120820
  Receipt Date: 20120827
  Transmission Date: 20130627
  Serious: Yes (Disabling)
  Sender: FDA-Public Use
  Company Number: TCI2012A04364

PATIENT
  Age: 79 Year
  Sex: Female

DRUGS (9)
  1. ROZEREM [Suspect]
     Indication: INITIAL INSOMNIA
     Dosage: (8 mg, 1 in -1)
     Route: 048
     Dates: start: 20120628
  2. ROZEREM [Suspect]
     Indication: INITIAL INSOMNIA
     Route: 048
  3. MEMARY [Suspect]
     Indication: DEMENTIA
     Route: 048
     Dates: start: 20120704, end: 20120802
  4. SIGMART [Concomitant]
  5. TAKEPRON OD [Concomitant]
  6. THYRADIN-S (LEVOTHYROXINE SODIUM) [Concomitant]
  7. BAYASPIRIN (ACETYLSALICYLIC ACID) [Concomitant]
  8. MAINTATE (BISOPROLOL FUMARATE) [Concomitant]
  9. MAGMITT (MAGNESIUM OXIDE) [Concomitant]

REACTIONS (3)
  - Atrioventricular block first degree [None]
  - General physical condition abnormal [None]
  - Oedema [None]
